FAERS Safety Report 21170999 (Version 1)
Quarter: 2022Q3

REPORT INFORMATION
  Report Type: Report from Study
  Country: HU (occurrence: HU)
  Receive Date: 20220804
  Receipt Date: 20220804
  Transmission Date: 20221027
  Serious: Yes (Hospitalization, Other)
  Sender: FDA-Public Use
  Company Number: HU-NOVARTISPH-NVSC2022HU174223

PATIENT
  Age: 75 Year
  Sex: Male

DRUGS (4)
  1. NEBIVOLOL [Suspect]
     Active Substance: NEBIVOLOL
     Indication: Angina pectoris
     Dosage: 5 MG
     Route: 048
     Dates: start: 20180906
  2. ENTRESTO [Suspect]
     Active Substance: SACUBITRIL\VALSARTAN
     Indication: Product used for unknown indication
     Dosage: 100 MG, BID (2X49/51)
     Route: 048
     Dates: start: 20220207
  3. SPIRONOLACTONE [Concomitant]
     Active Substance: SPIRONOLACTONE
     Indication: Cardiac failure
     Dosage: 25 MG
     Route: 048
     Dates: start: 20220106
  4. FUROSEMIDE [Concomitant]
     Active Substance: FUROSEMIDE
     Indication: Cardiac failure
     Dosage: 40 MG
     Route: 048
     Dates: start: 20220106

REACTIONS (10)
  - Biliary colic [Unknown]
  - Severe acute respiratory syndrome [Recovering/Resolving]
  - Congestive cardiomyopathy [Unknown]
  - Coronary artery stenosis [Unknown]
  - Atrial fibrillation [Unknown]
  - Atrial flutter [Unknown]
  - Blood potassium increased [Unknown]
  - Glycosylated haemoglobin increased [Unknown]
  - Aortic valve disease [Unknown]
  - Left ventricular dysfunction [Unknown]

NARRATIVE: CASE EVENT DATE: 20220501
